FAERS Safety Report 9231871 (Version 3)
Quarter: 2013Q4

REPORT INFORMATION
  Report Type: Spontaneous
  Country: DE (occurrence: DE)
  Receive Date: 20130415
  Receipt Date: 20131015
  Transmission Date: 20140711
  Serious: Yes (Hospitalization, Other)
  Sender: FDA-Public Use
  Company Number: DE-BAXTER-2013BAX013642

PATIENT
  Age: 64 Year
  Sex: Male

DRUGS (12)
  1. KIOVIG (30 G/300 ML) [Suspect]
     Indication: GUILLAIN-BARRE SYNDROME
     Route: 042
     Dates: start: 20130301, end: 20130304
  2. KIOVIG (20 G/200 ML) [Suspect]
     Indication: GUILLAIN-BARRE SYNDROME
     Route: 042
     Dates: start: 20130305
  3. KIOVIG (10 G/100 ML) [Suspect]
     Indication: GUILLAIN-BARRE SYNDROME
     Route: 042
     Dates: start: 20130305
  4. ENDOXAN 100MG [Suspect]
     Indication: PRODUCT USED FOR UNKNOWN INDICATION
     Dosage: 600MG/M2 BODY SURFACE
     Dates: start: 20130503
  5. ENDOXAN 100MG [Suspect]
     Dosage: 700 MG/M2 BODY SURFACE
     Dates: start: 20130531
  6. ENDOXAN 100MG [Suspect]
     Dosage: 700 MG/M2 BODY SURFACE
     Dates: start: 20130703
  7. ENDOXAN 100MG [Suspect]
     Dosage: 700 MG/M2 BODY SURFACE
     Dates: start: 20130731
  8. CIPROFLOXACIN [Suspect]
     Indication: URINARY TRACT INFECTION
     Dates: start: 20130203, end: 20130213
  9. CIPROFLOXACIN [Suspect]
     Indication: ENTEROCOCCAL INFECTION
     Dates: start: 20130731, end: 20130804
  10. CIPROFLOXACIN [Suspect]
     Indication: INFLAMMATORY MARKER INCREASED
  11. CIPROFLOXACIN [Suspect]
     Indication: PYREXIA
  12. TAZOBAC [Concomitant]
     Indication: INFLAMMATION
     Dates: start: 20130303, end: 20130324

REACTIONS (3)
  - Haemoglobin decreased [Recovered/Resolved]
  - Haemolytic anaemia [Unknown]
  - Sleep disorder [Unknown]
